FAERS Safety Report 24895465 (Version 1)
Quarter: 2025Q1

REPORT INFORMATION
  Report Type: Spontaneous
  Country: CA (occurrence: CA)
  Receive Date: 20250128
  Receipt Date: 20250128
  Transmission Date: 20250409
  Serious: Yes (Hospitalization, Other)
  Sender: FRESENIUS KABI
  Company Number: CA-FreseniusKabi-FK202501286

PATIENT
  Age: 7 Decade
  Sex: Female

DRUGS (12)
  1. FENTANYL [Suspect]
     Active Substance: FENTANYL
     Indication: Neuralgia
  2. FENTANYL [Suspect]
     Active Substance: FENTANYL
  3. FENTANYL [Suspect]
     Active Substance: FENTANYL
  4. MORPHINE [Suspect]
     Active Substance: MORPHINE
     Indication: Surgery
     Route: 048
  5. MORPHINE [Suspect]
     Active Substance: MORPHINE
     Route: 048
  6. HYDROMORPHONE [Suspect]
     Active Substance: HYDROMORPHONE
     Indication: Breakthrough pain
     Dosage: FOA: UNKNOWN
     Route: 048
  7. HYDROMORPHONE [Suspect]
     Active Substance: HYDROMORPHONE
     Dosage: FOA: UNKNOWN
     Route: 048
  8. HYDROMORPHONE [Suspect]
     Active Substance: HYDROMORPHONE
     Dosage: FOA: NOT SPECIFIED
     Route: 048
  9. CANNABIDIOL [Concomitant]
     Active Substance: CANNABIDIOL
     Indication: Pain
  10. GABAPENTIN [Concomitant]
     Active Substance: GABAPENTIN
     Indication: Product used for unknown indication
     Dosage: FOA: NOT SPECIFIED
     Route: 048
  11. HERBALS\TETRAHYDROCANNABINOL UNSPECIFIED [Concomitant]
     Active Substance: HERBALS\TETRAHYDROCANNABINOL UNSPECIFIED
     Indication: Pain
     Route: 048
  12. USTEKINUMAB [Concomitant]
     Active Substance: USTEKINUMAB
     Indication: Pain
     Route: 058

REACTIONS (5)
  - Anxiety [Recovering/Resolving]
  - Chest discomfort [Recovering/Resolving]
  - Drug withdrawal syndrome [Recovering/Resolving]
  - Hot flush [Recovering/Resolving]
  - Hyperaesthesia [Recovering/Resolving]
